FAERS Safety Report 8738665 (Version 2)
Quarter: 2013Q1

REPORT INFORMATION
  Report Type: Report from Study
  Country: JP (occurrence: JP)
  Receive Date: 20120823
  Receipt Date: 20130208
  Transmission Date: 20140127
  Serious: Yes (Other)
  Sender: FDA-Public Use
  Company Number: JP-VERTEX PHARMACEUTICAL INC.-2012-019712

PATIENT
  Age: 63 Year
  Sex: Male

DRUGS (11)
  1. VX-950 (TELAPREVIR) [Suspect]
     Indication: HEPATITIS C
     Dosage: 2250 MG, QD
     Route: 048
     Dates: start: 20120511, end: 20120629
  2. REBETOL [Suspect]
     Indication: HEPATITIS C
     Dosage: 800 MG, QD
     Route: 048
     Dates: start: 20120511, end: 20120601
  3. REBETOL [Suspect]
     Dosage: 600 MG, QD
     Route: 048
     Dates: start: 20120602, end: 20120605
  4. REBETOL [Suspect]
     Dosage: 400 MG, QD
     Route: 048
     Dates: start: 20120606, end: 20120614
  5. REBETOL [Suspect]
     Dosage: 200 MG, QD
     Route: 048
     Dates: start: 20120615, end: 20120629
  6. PEG-INTRON [Suspect]
     Indication: HEPATITIS C
     Dosage: 1.5 ?G/KG, QW
     Route: 058
     Dates: start: 20120511, end: 20120615
  7. PEG-INTRON [Suspect]
     Dosage: 60 ?G/ WEEK
     Route: 058
     Dates: start: 20120622, end: 20120622
  8. PREDONINE [Suspect]
     Indication: ADVERSE EVENT
     Dosage: 15 MG, QD
     Route: 048
     Dates: start: 20120704
  9. PREDONINE [Suspect]
     Dosage: 10 MG, QD
     Route: 048
     Dates: start: 20120711
  10. PREDONINE [Suspect]
     Dosage: 5 MG, QD
     Route: 048
     Dates: start: 20120718
  11. PREDONINE [Suspect]
     Dosage: 2.5 MG, QD
     Route: 048
     Dates: start: 20120727

REACTIONS (1)
  - Retinopathy [Recovered/Resolved]
